FAERS Safety Report 7556795-1 (Version None)
Quarter: 2011Q2

REPORT INFORMATION
  Report Type: 
  Country: None (occurrence: None)
  Receive Date: 20110620
  Receipt Date: 20110616
  Transmission Date: 20111010
  Serious: Yes (Other)
  Sender: FDA-Public Use
  Company Number: US-AMGEN-USASP2011031031

PATIENT
  Age: 75 Year
  Sex: Female

DRUGS (7)
  1. GLIPIZIDE [Concomitant]
  2. LASIX [Concomitant]
  3. CYMBALTA [Concomitant]
  4. TYLENOL (CAPLET) [Concomitant]
  5. TRAMADOL HCL [Concomitant]
  6. ACYCLOVIR [Concomitant]
  7. NPLATE [Suspect]
     Indication: IDIOPATHIC THROMBOCYTOPENIC PURPURA
     Dosage: UNK
     Dates: start: 20110101

REACTIONS (1)
  - THROMBOSIS [None]
